FAERS Safety Report 4302587-6 (Version None)
Quarter: 2004Q1

REPORT INFORMATION
  Report Type: 
  Country: None (occurrence: None)
  Receive Date: 20040224
  Receipt Date: 20040212
  Transmission Date: 20041129
  Serious: Yes (Hospitalization)
  Sender: FDA-Public Use
  Company Number: US-BRISTOL-MYERS SQUIBB COMPANY-12504635

PATIENT
  Sex: Female

DRUGS (6)
  1. STADOL [Suspect]
     Route: 055
     Dates: start: 19960101, end: 19970725
  2. DEMEROL [Concomitant]
     Route: 030
  3. PERCOCET [Concomitant]
     Indication: MIGRAINE
  4. IMITREX [Concomitant]
     Route: 030
  5. COMPAZINE [Concomitant]
     Indication: MIGRAINE
     Dosage: ROUTE OF ADMINISTRATION: INTRAMUSCULAR AND ORAL.
  6. TYLENOL (CAPLET) [Concomitant]

REACTIONS (2)
  - DRUG EXPOSURE DURING PREGNANCY [None]
  - INTRA-UTERINE DEATH [None]
